FAERS Safety Report 7691017-2 (Version None)
Quarter: 2011Q3

REPORT INFORMATION
  Report Type: 
  Country: None (occurrence: None)
  Receive Date: 20110818
  Receipt Date: 20110805
  Transmission Date: 20111222
  Serious: Yes (Hospitalization)
  Sender: FDA-Public Use
  Company Number: US-ROCHE-795331

PATIENT
  Sex: Female
  Weight: 97.7 kg

DRUGS (18)
  1. TOCILIZUMAB [Suspect]
     Route: 042
     Dates: start: 20080619
  2. PLAVIX [Concomitant]
     Dates: start: 20050309
  3. TYLENOL-500 [Concomitant]
     Dates: start: 20040101
  4. TOCILIZUMAB [Suspect]
     Route: 042
     Dates: start: 20100311
  5. METHOTREXATE [Concomitant]
     Dates: start: 20040413
  6. TOCILIZUMAB [Suspect]
     Route: 042
     Dates: start: 20081204
  7. GLIMEPIRIDE [Concomitant]
     Dates: start: 20080125
  8. PLACEBO [Suspect]
     Indication: RHEUMATOID ARTHRITIS
     Route: 042
     Dates: start: 20061207
  9. CALCIUM CARBONATE [Concomitant]
     Dates: start: 19980101
  10. TOCILIZUMAB [Suspect]
     Route: 042
     Dates: start: 20081231
  11. VYTORIN [Concomitant]
     Dosage: TDD REPORTED AS 10/40 MG
     Dates: start: 20050714
  12. ASPIRIN [Concomitant]
     Dates: start: 20070808
  13. METHOTREXATE [Concomitant]
     Dates: start: 19980101
  14. DARVOCET-N 50 [Concomitant]
     Dosage: DRUG NAME REPORTED AS DARVOCET N-100
     Dates: start: 20050422
  15. CALCIUM CARBONATE [Concomitant]
     Dates: start: 20040101
  16. TOCILIZUMAB [Suspect]
     Indication: RHEUMATOID ARTHRITIS
     Route: 042
     Dates: start: 20081107
  17. TOCILIZUMAB [Suspect]
     Route: 042
     Dates: start: 20080129
  18. FOLIC ACID [Concomitant]
     Dates: start: 20050805

REACTIONS (1)
  - AORTIC ANEURYSM [None]
